FAERS Safety Report 15044312 (Version 1)
Quarter: 2018Q2

REPORT INFORMATION
  Report Type: Spontaneous
  Country: BR (occurrence: BR)
  Receive Date: 20180621
  Receipt Date: 20180621
  Transmission Date: 20180711
  Serious: Yes (Other)
  Sender: FDA-Public Use
  Company Number: BR-BAYER-2018-114405

PATIENT
  Age: 32 Year
  Sex: Female

DRUGS (4)
  1. TOPIRAMATE. [Concomitant]
     Active Substance: TOPIRAMATE
     Dosage: 100 MG, BID
  2. GARDENAL [Concomitant]
     Active Substance: PHENOBARBITAL
     Dosage: 100 MG, BID
  3. MIRENA [Suspect]
     Active Substance: LEVONORGESTREL
     Indication: CONTRACEPTION
     Dosage: 20 MCG/24HR, CONT
     Route: 015
     Dates: start: 20110328
  4. DEPAKENE [Concomitant]
     Active Substance: VALPROIC ACID
     Dosage: 500 MG, TID

REACTIONS (5)
  - Syncope [None]
  - Drug ineffective [None]
  - Pregnancy with contraceptive device [None]
  - Petit mal epilepsy [None]
  - Premature delivery [None]

NARRATIVE: CASE EVENT DATE: 201408
